FAERS Safety Report 16826374 (Version 1)
Quarter: 2019Q3

REPORT INFORMATION
  Report Type: Spontaneous
  Country: FR (occurrence: FR)
  Receive Date: 20190919
  Receipt Date: 20190919
  Transmission Date: 20191005
  Serious: Yes (Death, Hospitalization, Other)
  Sender: FDA-Public Use
  Company Number: FR-ACCORD-154942

PATIENT
  Age: 63 Year
  Sex: Female

DRUGS (2)
  1. VINORELBINE [Suspect]
     Active Substance: VINORELBINE TARTRATE
     Indication: INVASIVE DUCTAL BREAST CARCINOMA
     Dosage: QD
     Route: 048
     Dates: start: 2017
  2. CAPECITABINE. [Suspect]
     Active Substance: CAPECITABINE
     Indication: INVASIVE DUCTAL BREAST CARCINOMA
     Dosage: 1000 MG THE MORNING AND 1250 MG THE EVENING
     Dates: start: 2017

REACTIONS (12)
  - Vomiting [Fatal]
  - Hepatic function abnormal [Fatal]
  - Renal impairment [Fatal]
  - Erythema [Fatal]
  - Nausea [Fatal]
  - Sepsis [Fatal]
  - Thrombocytopenia [Fatal]
  - Cell death [Fatal]
  - Mucosal inflammation [Fatal]
  - Decreased appetite [Fatal]
  - Neutropenia [Fatal]
  - Palmar-plantar erythrodysaesthesia syndrome [Fatal]
